FAERS Safety Report 25073299 (Version 1)
Quarter: 2025Q1

REPORT INFORMATION
  Report Type: Spontaneous
  Country: US (occurrence: None)
  Receive Date: 20250312
  Receipt Date: 20250312
  Transmission Date: 20250409
  Serious: Yes (Disabling)
  Sender: FDA-CTU
  Company Number: None

PATIENT
  Age: 29 Year
  Sex: Male
  Weight: 76.5 kg

DRUGS (3)
  1. BUDESONIDE [Suspect]
     Active Substance: BUDESONIDE
     Indication: Eosinophilic oesophagitis
  2. Rabeprezole [Concomitant]
  3. Mens Multivitamin [Concomitant]

REACTIONS (2)
  - Fracture [None]
  - Osteopenia [None]

NARRATIVE: CASE EVENT DATE: 20241012
